FAERS Safety Report 21717515 (Version 1)
Quarter: 2022Q4

REPORT INFORMATION
  Report Type: Spontaneous
  Country: US (occurrence: None)
  Receive Date: 20221212
  Receipt Date: 20221212
  Transmission Date: 20230113
  Serious: No
  Sender: FDA-Public Use
  Company Number: None

PATIENT
  Age: 50 Year
  Sex: Male

DRUGS (1)
  1. NIRMATRELVIR\RITONAVIR [Suspect]
     Active Substance: NIRMATRELVIR\RITONAVIR
     Indication: Upper respiratory tract infection

REACTIONS (5)
  - Headache [None]
  - Pain [None]
  - COVID-19 [None]
  - Abdominal pain [None]
  - Abdominal discomfort [None]

NARRATIVE: CASE EVENT DATE: 20220821
